FAERS Safety Report 24047082 (Version 1)
Quarter: 2024Q3

REPORT INFORMATION
  Report Type: Spontaneous
  Country: US (occurrence: US)
  Receive Date: 20240703
  Receipt Date: 20240703
  Transmission Date: 20241017
  Serious: Yes (Other)
  Sender: AMGEN
  Company Number: US-AMGEN-USASP2024124270

PATIENT
  Age: 71 Year
  Sex: Male

DRUGS (1)
  1. PREDNISONE [Suspect]
     Active Substance: PREDNISONE
     Indication: Erdheim-Chester disease
     Dosage: UNK, LOW DOSE
     Route: 065

REACTIONS (4)
  - Interstitial lung disease [Unknown]
  - Diaphragm muscle weakness [Unknown]
  - Hypercapnia [Unknown]
  - Muscular weakness [Unknown]
